FAERS Safety Report 18875169 (Version 1)
Quarter: 2021Q1

REPORT INFORMATION
  Report Type: Report from Study
  Country: DE (occurrence: DE)
  Receive Date: 20210211
  Receipt Date: 20210211
  Transmission Date: 20210420
  Serious: Yes (Other)
  Sender: FDA-Public Use
  Company Number: DE-AUROBINDO-AUR-APL-2021-005494

PATIENT
  Age: 65 Year
  Sex: Female

DRUGS (2)
  1. PRASUGREL FILM COATED TABLETS [Suspect]
     Active Substance: PRASUGREL
     Indication: ANTIPLATELET THERAPY
     Dosage: 10 MILLIGRAM
     Route: 048
  2. ASPIRIN. [Suspect]
     Active Substance: ASPIRIN
     Indication: ANTIPLATELET THERAPY
     Dosage: 100 MILLIGRAM
     Route: 048

REACTIONS (2)
  - Cerebral vasoconstriction [Unknown]
  - Cerebral infarction [Unknown]
